FAERS Safety Report 8165264-X (Version None)
Quarter: 2012Q1

REPORT INFORMATION
  Report Type: 
  Country: None (occurrence: None)
  Receive Date: 20120222
  Receipt Date: 20120222
  Transmission Date: 20120608
  Serious: No
  Sender: FDA-Public Use
  Company Number: None

PATIENT
  Age: 58 Year
  Sex: Female
  Weight: 77.1115 kg

DRUGS (1)
  1. PRAZOSIN HYDROCHLORIDE [Suspect]
     Indication: INSOMNIA
     Dosage: 1 MG 1 AT NIGHT
     Dates: start: 20120124

REACTIONS (2)
  - TREMOR [None]
  - HEADACHE [None]
